FAERS Safety Report 10544190 (Version 4)
Quarter: 2015Q1

REPORT INFORMATION
  Report Type: Spontaneous
  Country: RU (occurrence: RU)
  Receive Date: 20141027
  Receipt Date: 20150115
  Transmission Date: 20150720
  Serious: Yes (Other)
  Sender: FDA-Public Use
  Company Number: RU-GLAXOSMITHKLINE-B1025286A

PATIENT
  Sex: Male

DRUGS (13)
  1. FLUCOSTAT [Suspect]
     Active Substance: FLUCONAZOLE
     Indication: PRODUCT USED FOR UNKNOWN INDICATION
     Dosage: 1 DF, WE
  2. LAMIVUDINE. [Concomitant]
     Active Substance: LAMIVUDINE
  3. REYATAZ [Concomitant]
     Active Substance: ATAZANAVIR SULFATE
     Indication: HIV INFECTION
  4. STOCRIN [Suspect]
     Active Substance: EFAVIRENZ
     Indication: HIV INFECTION
     Route: 065
     Dates: start: 2014, end: 2014
  5. MAGNE B6 [Suspect]
     Active Substance: MAGNESIUM\PYRIDOXINE
  6. VITAMIN B6 [Suspect]
     Active Substance: PYRIDOXINE HYDROCHLORIDE
     Indication: HIV INFECTION
     Route: 065
     Dates: start: 20140626, end: 2014
  7. SPIRULINA [Suspect]
     Active Substance: SPIRULINA
     Indication: HIV INFECTION
     Route: 065
     Dates: start: 20140626, end: 2014
  8. KIVEXA [Suspect]
     Active Substance: ABACAVIR SULFATE\LAMIVUDINE
     Indication: HIV INFECTION
     Route: 065
     Dates: start: 2014, end: 2014
  9. AZITHROMYCIN [Suspect]
     Active Substance: AZITHROMYCIN ANHYDROUS
     Indication: HIV INFECTION
     Route: 065
     Dates: end: 2014
  10. ETHAMBUTOL + INH + PYRAZINAMID + RIFAMPICIN [Suspect]
     Active Substance: ETHAMBUTOL\ISONIAZID\PYRAZINAMIDE\RIFAMPIN
     Indication: ANTIBIOTIC PROPHYLAXIS
     Route: 065
     Dates: start: 2014, end: 2014
  11. IBUPROFEN. [Suspect]
     Active Substance: IBUPROFEN
     Indication: PRODUCT USED FOR UNKNOWN INDICATION
     Route: 065
     Dates: start: 20140626, end: 2014
  12. ZIDOVUDINE. [Concomitant]
     Active Substance: ZIDOVUDINE
     Indication: HIV INFECTION
  13. RITONAVIR. [Concomitant]
     Active Substance: RITONAVIR
     Indication: HIV INFECTION

REACTIONS (15)
  - Herpes zoster [Unknown]
  - Dizziness [Unknown]
  - Oropharyngeal pain [Unknown]
  - Pneumonia [Unknown]
  - Rash [Recovering/Resolving]
  - Lymphadenopathy [Recovered/Resolved]
  - Disseminated tuberculosis [Unknown]
  - Skin burning sensation [Recovering/Resolving]
  - Tinnitus [Recovered/Resolved]
  - Asthenia [Unknown]
  - Pyrexia [Recovering/Resolving]
  - Lip dry [Unknown]
  - Pain [Not Recovered/Not Resolved]
  - Eye irritation [Recovering/Resolving]
  - Pruritus [Recovering/Resolving]

NARRATIVE: CASE EVENT DATE: 2014
